FAERS Safety Report 19076591 (Version 1)
Quarter: 2021Q1

REPORT INFORMATION
  Report Type: Report from Study
  Country: IT (occurrence: IT)
  Receive Date: 20210331
  Receipt Date: 20210331
  Transmission Date: 20210420
  Serious: Yes (Other)
  Sender: FDA-Public Use
  Company Number: IT-TEVA-2021-IT-1895199

PATIENT
  Age: 57 Year
  Sex: Male
  Weight: 76 kg

DRUGS (5)
  1. FLUOROURACIL. [Suspect]
     Active Substance: FLUOROURACIL
     Indication: RECTAL ADENOCARCINOMA
     Dosage: 755MG
     Route: 040
     Dates: start: 20210125
  2. CALCIUM LEVOFOLINATE [Suspect]
     Active Substance: LEVOLEUCOVORIN CALCIUM
     Indication: RECTAL ADENOCARCINOMA
     Dosage: 380MG
     Route: 042
     Dates: start: 20210125
  3. IRINOTECAN HIKMA 20MG/ML CONCENTRATO PER SOLUZIONE PER INFUSIONE [Suspect]
     Active Substance: IRINOTECAN
     Indication: RECTAL ADENOCARCINOMA
     Dosage: 340MG
     Route: 042
     Dates: start: 20210125
  4. ZALTRAP [Suspect]
     Active Substance: ZIV-AFLIBERCEPT
     Indication: RECTAL ADENOCARCINOMA
     Dosage: 300MG
     Route: 042
     Dates: start: 20210125
  5. FLUOROURACIL. [Suspect]
     Active Substance: FLUOROURACIL
     Indication: RECTAL ADENOCARCINOMA
     Dosage: 4535MG
     Route: 042
     Dates: start: 20210125

REACTIONS (2)
  - Hypertension [Unknown]
  - Neutropenia [Unknown]

NARRATIVE: CASE EVENT DATE: 20210311
